FAERS Safety Report 9373100 (Version 1)
Quarter: 2013Q2

REPORT INFORMATION
  Report Type: Spontaneous
  Country: US (occurrence: US)
  Receive Date: 20130627
  Receipt Date: 20130627
  Transmission Date: 20140414
  Serious: Yes (Death, Other)
  Sender: FDA-Public Use
  Company Number: US-ELI_LILLY_AND_COMPANY-US201306007784

PATIENT
  Age: 31 Year
  Sex: Female

DRUGS (4)
  1. EFFIENT [Suspect]
     Indication: STENT PLACEMENT
     Dosage: 60 MG, SINGLE
     Dates: start: 20130611, end: 20130611
  2. ANGIOMAX [Concomitant]
     Dosage: UNK
     Dates: start: 20130611
  3. HEPARIN [Concomitant]
     Dosage: UNK
     Dates: start: 20130611
  4. ASPIRIN [Concomitant]
     Dosage: UNK
     Dates: start: 20130611

REACTIONS (3)
  - Death [Fatal]
  - Cerebral haemorrhage [Unknown]
  - Blood pressure fluctuation [Unknown]
